FAERS Safety Report 7098409-3 (Version None)
Quarter: 2010Q4

REPORT INFORMATION
  Report Type: 
  Country: None (occurrence: None)
  Receive Date: 20101112
  Receipt Date: 20101108
  Transmission Date: 20110411
  Serious: Yes (Death, Life-Threatening)
  Sender: FDA-Public Use
  Company Number: DE-SANOFI-AVENTIS-2010SA067608

PATIENT
  Age: 68 Year
  Sex: Male

DRUGS (6)
  1. OXALIPLATIN [Suspect]
     Route: 041
     Dates: start: 20081222, end: 20081222
  2. OXALIPLATIN [Suspect]
     Route: 041
     Dates: start: 20090101, end: 20090101
  3. CETUXIMAB [Suspect]
     Route: 041
     Dates: start: 20081208, end: 20081208
  4. CETUXIMAB [Suspect]
     Route: 041
     Dates: start: 20090101, end: 20090101
  5. FLUOROURACIL [Suspect]
     Route: 041
     Dates: start: 20081222, end: 20081222
  6. FLUOROURACIL [Suspect]
     Route: 041
     Dates: start: 20090101, end: 20090101

REACTIONS (5)
  - CARDIO-RESPIRATORY ARREST [None]
  - ENTEROCOCCAL SEPSIS [None]
  - FAILURE TO ANASTOMOSE [None]
  - MEDIASTINITIS [None]
  - PYREXIA [None]
